FAERS Safety Report 9561991 (Version 1)
Quarter: 2013Q3

REPORT INFORMATION
  Report Type: Spontaneous
  Country: US (occurrence: None)
  Receive Date: 20130830
  Receipt Date: 20130830
  Transmission Date: 20140515
  Serious: Yes (Other)
  Sender: FDA-Public Use
  Company Number: AMAG201300079

PATIENT
  Age: 71 Year
  Sex: Male

DRUGS (14)
  1. FERAHEME (FERUMOXYTOL) INJECTION, 510MG [Suspect]
     Indication: IRON DEFICIENCY ANAEMIA
     Route: 042
     Dates: start: 20130516, end: 20130516
  2. LASIX (FUROSEMIDE) [Concomitant]
  3. KAYEXALATE (SODIUM POLYSTYRENE SULFONATE) [Concomitant]
  4. SODIUM BICARBONATE [Concomitant]
  5. DOXAZOSIN (DOXAZOSIN MESILATE) [Concomitant]
  6. VITAMIN D (COLECALCIFEROL) [Concomitant]
  7. CARVEDILOL [Concomitant]
  8. ALLOPURINOL [Concomitant]
  9. ALL OTHER THERAPEUTIC PRODUCTS (ALLERGY RELIEF) [Concomitant]
  10. AMIODARONE (AMIODARONE HYDROCHLORIDE) [Concomitant]
  11. ATROVENT (IPRATROPIUM BROMIDE) [Concomitant]
  12. MULTIVITAMINS (ASCORBIC ACID, ERGOCALCIFEROL, FOLIC ACID, NICOTINAMIDE, PANTHENOL, RETINOL, RIBOFLAVIN, THIAMINE HYDROCHLORIDE) [Concomitant]
  13. INDOMETHACIN [Concomitant]
  14. ALL OTHER THERAPEUTIC PRODUCTS (DEXOSEXONADE) [Concomitant]

REACTIONS (1)
  - Ventricular extrasystoles [None]
